FAERS Safety Report 5403295-0 (Version None)
Quarter: 2007Q3

REPORT INFORMATION
  Report Type: 
  Country: None (occurrence: None)
  Receive Date: 20070801
  Receipt Date: 20070725
  Transmission Date: 20080115
  Serious: Yes (Death, Life-Threatening, Hospitalization, Other)
  Sender: FDA-Public Use
  Company Number: FR-BRISTOL-MYERS SQUIBB COMPANY-13822432

PATIENT
  Age: 57 Year
  Sex: Female

DRUGS (9)
  1. HOLOXAN [Suspect]
     Indication: LEIOMYOSARCOMA
     Route: 042
     Dates: start: 20070521, end: 20070521
  2. ADRIAMYCIN PFS [Suspect]
     Indication: LEIOMYOSARCOMA
     Route: 042
     Dates: start: 20070507, end: 20070507
  3. DETICENE [Suspect]
     Indication: LEIOMYOSARCOMA
     Route: 042
     Dates: start: 20070507, end: 20070507
  4. UROMITEXAN [Concomitant]
  5. ZOFRAN [Concomitant]
  6. SOLU-MEDROL [Concomitant]
  7. LEVOTHYROXINE SODIUM [Concomitant]
  8. ATENOLOL [Concomitant]
  9. TAREG [Concomitant]

REACTIONS (4)
  - ENCEPHALOPATHY [None]
  - HYPERAESTHESIA [None]
  - MALIGNANT NEOPLASM PROGRESSION [None]
  - MYOCLONUS [None]
